FAERS Safety Report 15132476 (Version 2)
Quarter: 2018Q3

REPORT INFORMATION
  Report Type: Report from Study
  Country: None (occurrence: NL)
  Receive Date: 20180712
  Receipt Date: 20180718
  Transmission Date: 20181010
  Serious: Yes (Hospitalization)
  Sender: FDA-Public Use
  Company Number: NL-ABBVIE-18S-114-2413952-00

PATIENT
  Age: 85 Year
  Sex: Female

DRUGS (1)
  1. DUODOPA [Suspect]
     Active Substance: CARBIDOPA\LEVODOPA
     Indication: PARKINSON^S DISEASE
     Dosage: MORNING DOSE: 9? ?CONTINUOUS DOSE: 2.1??   ?EXTRA DOSE: 1
     Route: 050
     Dates: start: 20180625

REACTIONS (4)
  - Abdominal infection [Not Recovered/Not Resolved]
  - Abdominal pain [Recovered/Resolved]
  - Pneumoperitoneum [Recovered/Resolved]
  - Gastrointestinal pain [Recovered/Resolved]

NARRATIVE: CASE EVENT DATE: 201807
